FAERS Safety Report 10862626 (Version 1)
Quarter: 2015Q1

REPORT INFORMATION
  Report Type: Spontaneous
  Country: IT (occurrence: IT)
  Receive Date: 20150223
  Receipt Date: 20150223
  Transmission Date: 20150721
  Serious: Yes (Hospitalization)
  Sender: FDA-Public Use
  Company Number: IT-PFIZER INC-2015060666

PATIENT
  Age: 84 Year
  Sex: Male

DRUGS (3)
  1. TRADJENTA [Suspect]
     Active Substance: LINAGLIPTIN
     Dosage: 45 MG, TOTAL
     Route: 048
     Dates: start: 20150120, end: 20150120
  2. CORDARONE [Suspect]
     Active Substance: AMIODARONE HYDROCHLORIDE
     Dosage: 1200 MG, TOTAL
     Route: 048
     Dates: start: 20150121, end: 20150121
  3. COUMADINE [Suspect]
     Active Substance: WARFARIN SODIUM
     Dosage: 75 MG TOTAL
     Route: 048
     Dates: start: 20150120, end: 20150120

REACTIONS (2)
  - Suicide attempt [Unknown]
  - Drug abuse [Unknown]

NARRATIVE: CASE EVENT DATE: 20150121
